FAERS Safety Report 7418513-7 (Version None)
Quarter: 2011Q2

REPORT INFORMATION
  Report Type: 
  Country: None (occurrence: None)
  Receive Date: 20110407
  Receipt Date: 20110325
  Transmission Date: 20111010
  Serious: Yes (Other)
  Sender: FDA-Public Use
  Company Number: 019724

PATIENT
  Sex: Female
  Weight: 67 kg

DRUGS (2)
  1. KEPPRA [Suspect]
     Indication: MYOCLONIC EPILEPSY
     Dosage: (2  G ORAL)
     Route: 048
     Dates: start: 20100301
  2. SPECIAFOLDINE [Concomitant]

REACTIONS (3)
  - PREGNANCY [None]
  - STILLBIRTH [None]
  - DRUG EXPOSURE DURING PREGNANCY [None]
